FAERS Safety Report 15950945 (Version 8)
Quarter: 2019Q2

REPORT INFORMATION
  Report Type: Report from Study
  Country: DE (occurrence: DE)
  Receive Date: 20190212
  Receipt Date: 20190406
  Transmission Date: 20190711
  Serious: Yes (Death, Life-Threatening, Hospitalization, Other)
  Sender: FDA-Public Use
  Company Number: DE-B.I. PHARMACEUTICALS,INC./RIDGEFIELD-2019-BI-005398

PATIENT
  Age: 65 Year
  Sex: Male
  Weight: 95 kg

DRUGS (2)
  1. VARGATEF [Suspect]
     Active Substance: NINTEDANIB
     Indication: LUNG ADENOCARCINOMA
     Route: 048
     Dates: start: 20190130
  2. DOCETAXEL. [Suspect]
     Active Substance: DOCETAXEL
     Indication: NON-SMALL CELL LUNG CANCER
     Dosage: FORM OF ADMIN: INFUSION/LIQUID; DAILY DOSE: 75MG/M2 BSA
     Route: 042
     Dates: start: 20190129, end: 20190129

REACTIONS (7)
  - White blood cell count decreased [Recovered/Resolved]
  - Diarrhoea [Not Recovered/Not Resolved]
  - Dehydration [Unknown]
  - Sepsis [Fatal]
  - Cardiac arrest [Fatal]
  - Bone marrow disorder [Unknown]
  - Platelet count decreased [Not Recovered/Not Resolved]

NARRATIVE: CASE EVENT DATE: 20190131
